FAERS Safety Report 7321790-4 (Version None)
Quarter: 2011Q1

REPORT INFORMATION
  Report Type: 
  Country: None (occurrence: None)
  Receive Date: 20110228
  Receipt Date: 20110223
  Transmission Date: 20110831
  Serious: Yes (Other)
  Sender: FDA-Public Use
  Company Number: US-PFIZER INC-2006082973

PATIENT
  Sex: Female
  Weight: 58.51 kg

DRUGS (4)
  1. DETROL LA [Suspect]
     Indication: INCONTINENCE
     Route: 048
     Dates: start: 20060301
  2. LISINOPRIL [Concomitant]
     Indication: HYPERTENSION
     Route: 065
  3. COZAAR [Concomitant]
     Indication: HYPERTENSION
     Route: 065
  4. FUROSEMIDE [Concomitant]
     Indication: HYPERTENSION
     Route: 065

REACTIONS (2)
  - URINARY TRACT INFECTION [None]
  - DRUG INEFFECTIVE [None]
